FAERS Safety Report 22400934 (Version 3)
Quarter: 2023Q4

REPORT INFORMATION
  Report Type: Report from Study
  Country: US (occurrence: US)
  Receive Date: 20230602
  Receipt Date: 20231025
  Transmission Date: 20240110
  Serious: No
  Sender: FDA-Public Use
  Company Number: US-IDORSIA-005293-2023-US

PATIENT
  Sex: Female

DRUGS (3)
  1. QUVIVIQ [Suspect]
     Active Substance: DARIDOREXANT
     Indication: Insomnia
     Dosage: 50 MG, QD
     Route: 048
  2. ZYRTEC [Concomitant]
     Active Substance: CETIRIZINE HYDROCHLORIDE
     Indication: Hypersensitivity
  3. SINGULAIR [Concomitant]
     Active Substance: MONTELUKAST SODIUM
     Indication: Hypersensitivity

REACTIONS (2)
  - Depression [Recovered/Resolved]
  - Disturbance in attention [Recovered/Resolved]
